FAERS Safety Report 8868540 (Version 6)
Quarter: 2013Q2

REPORT INFORMATION
  Report Type: Spontaneous
  Country: US (occurrence: US)
  Receive Date: 20121024
  Receipt Date: 20130621
  Transmission Date: 20140414
  Serious: Yes (Other)
  Sender: FDA-Public Use
  Company Number: US-ASTRAZENECA-2011SE03431

PATIENT
  Age: 66 Year
  Sex: Female
  Weight: 77.6 kg

DRUGS (6)
  1. NEXIUM [Suspect]
     Indication: GASTROOESOPHAGEAL REFLUX DISEASE
     Route: 048
     Dates: start: 2009
  2. ANTIBIOTICS CONTAINING SULFA [Suspect]
     Route: 065
  3. XANAX [Concomitant]
  4. LEVOTHYROXINE [Concomitant]
  5. ENALAPRIL [Concomitant]
  6. GLIPIZIDE [Concomitant]

REACTIONS (21)
  - Rectal haemorrhage [Unknown]
  - Cholecystitis infective [Unknown]
  - Haemorrhage [Unknown]
  - Activities of daily living impaired [Unknown]
  - Chest discomfort [Unknown]
  - Dyspnoea [Unknown]
  - Gastrooesophageal reflux disease [Unknown]
  - Dysuria [Unknown]
  - Abdominal distension [Unknown]
  - Abnormal faeces [Unknown]
  - Gallbladder enlargement [Unknown]
  - Oral mucosal erythema [Unknown]
  - Haematuria [Unknown]
  - Abdominal pain [Unknown]
  - Dry mouth [Unknown]
  - Confusional state [Unknown]
  - Headache [Unknown]
  - Nausea [Unknown]
  - Rash [Unknown]
  - Malaise [Unknown]
  - Drug dose omission [Unknown]
